FAERS Safety Report 12215961 (Version 1)
Quarter: 2016Q1

REPORT INFORMATION
  Report Type: Other
  Country: IN (occurrence: IN)
  Receive Date: 20160328
  Receipt Date: 20160328
  Transmission Date: 20160526
  Serious: No
  Sender: FDA-Public Use
  Company Number: IN-LUPIN PHARMACEUTICALS INC.-2015-04350

PATIENT
  Age: 42 Year
  Sex: Male

DRUGS (3)
  1. TOPIRAMATE. [Suspect]
     Active Substance: TOPIRAMATE
     Indication: ALCOHOLISM
     Dosage: 50 MG
     Route: 065
  2. TOPIRAMATE. [Suspect]
     Active Substance: TOPIRAMATE
     Dosage: GRADUALLY INCREASED TO 200 MG
     Route: 065
  3. TOPIRAMATE. [Suspect]
     Active Substance: TOPIRAMATE
     Dosage: REDUCED TO 100 MG/DAY
     Route: 065

REACTIONS (1)
  - Priapism [Recovered/Resolved]
